FAERS Safety Report 5384163-X (Version None)
Quarter: 2007Q3

REPORT INFORMATION
  Report Type: 
  Country: None (occurrence: None)
  Receive Date: 20070711
  Receipt Date: 20070702
  Transmission Date: 20080115
  Serious: Yes (Death, Hospitalization)
  Sender: FDA-Public Use
  Company Number: HQWYE154320FEB07

PATIENT
  Sex: Male
  Weight: 55 kg

DRUGS (12)
  1. MYLOTARG [Suspect]
     Indication: ACUTE MYELOID LEUKAEMIA
     Route: 041
     Dates: start: 20061215, end: 20061215
  2. MYLOTARG [Suspect]
     Route: 041
     Dates: start: 20070111, end: 20070111
  3. MAGNESIUM OXIDE [Concomitant]
     Indication: CONSTIPATION
     Dosage: 3 G DAILY
     Route: 048
     Dates: start: 20060803, end: 20070124
  4. SELBEX [Concomitant]
     Indication: PROPHYLAXIS
     Dosage: 1.5 G DAILY
     Route: 048
     Dates: start: 20060714, end: 20070201
  5. FUNGUARD [Concomitant]
     Indication: PROPHYLAXIS
     Dosage: 100 MG DAILY
     Route: 041
     Dates: start: 20070120, end: 20070126
  6. BAKTAR [Concomitant]
     Indication: PROPHYLAXIS
     Dosage: 1 G DAILY
     Route: 048
     Dates: start: 20060714, end: 20070201
  7. FLUCONAZOLE [Concomitant]
     Indication: PROPHYLAXIS
     Dosage: 200 MG DAILY
     Route: 048
     Dates: start: 20060725, end: 20070124
  8. FLUCONAZOLE [Concomitant]
     Dosage: 400 MG DAILY
     Route: 048
     Dates: start: 20070112, end: 20070120
  9. POLYMYXIN B SULFATE [Concomitant]
     Indication: PROPHYLAXIS
     Dosage: 3.0 MIU DAILY
     Route: 048
     Dates: start: 20060725, end: 20070124
  10. TAKEPRON [Concomitant]
     Indication: PROPHYLAXIS
     Dosage: 15 MG DAILY
     Route: 048
     Dates: start: 20070106, end: 20070201
  11. FAMOTIDINE [Concomitant]
     Indication: PROPHYLAXIS
     Dosage: 40 MG DAILY
     Route: 048
     Dates: start: 20060714, end: 20070124
  12. NAPROXEN [Concomitant]
     Indication: TUMOUR ASSOCIATED FEVER
     Dosage: 600 MG DAILY
     Route: 048
     Dates: start: 20060810, end: 20070124

REACTIONS (8)
  - DISSEMINATED INTRAVASCULAR COAGULATION [None]
  - GASTROINTESTINAL HAEMORRHAGE [None]
  - HAEMORRHAGIC DIATHESIS [None]
  - HEPATIC FUNCTION ABNORMAL [None]
  - RENAL FAILURE [None]
  - SEPSIS [None]
  - SEPTIC SHOCK [None]
  - SUBDURAL HAEMORRHAGE [None]
